FAERS Safety Report 8535446 (Version 2)
Quarter: 2013Q2

REPORT INFORMATION
  Report Type: Spontaneous
  Country: US (occurrence: None)
  Receive Date: 20120327
  Receipt Date: 20120709
  Transmission Date: 20140414
  Serious: Yes (Other)
  Sender: FDA-Public Use
  Company Number: PHHY2011US05339

PATIENT
  Sex: Male

DRUGS (1)
  1. GLEEVEC [Suspect]
     Indication: SOFT TISSUE CANCER
     Dosage: 400 MG, QD, ORAL
     Route: 048
     Dates: start: 2009

REACTIONS (4)
  - SKIN HAEMORRHAGE [None]
  - CONTUSION [None]
  - SKIN ATROPHY [None]
  - Fatigue [None]
